FAERS Safety Report 12087851 (Version 1)
Quarter: 2016Q1

REPORT INFORMATION
  Report Type: Spontaneous
  Country: US (occurrence: US)
  Receive Date: 20160217
  Receipt Date: 20160217
  Transmission Date: 20160526
  Serious: No
  Sender: FDA-Public Use
  Company Number: US-ALLERGAN-1519053US

PATIENT
  Sex: Female

DRUGS (1)
  1. RESTASIS [Suspect]
     Active Substance: CYCLOSPORINE
     Indication: PRODUCT USED FOR UNKNOWN INDICATION
     Dosage: UNK
     Route: 047

REACTIONS (5)
  - Intracranial pressure increased [Not Recovered/Not Resolved]
  - Corneal lesion [Not Recovered/Not Resolved]
  - Swelling face [Not Recovered/Not Resolved]
  - Jaw disorder [Not Recovered/Not Resolved]
  - Generalised oedema [Not Recovered/Not Resolved]
